FAERS Safety Report 10068734 (Version 2)
Quarter: 2014Q2

REPORT INFORMATION
  Report Type: Spontaneous
  Country: CO (occurrence: CO)
  Receive Date: 20140409
  Receipt Date: 20140409
  Transmission Date: 20141212
  Serious: Yes (Other)
  Sender: FDA-Public Use
  Company Number: CO-009507513-1402COL007710

PATIENT
  Age: 64 Year
  Sex: Male
  Weight: 57 kg

DRUGS (4)
  1. PEG-INTRON [Suspect]
     Indication: HEPATITIS C
     Dosage: 120MCG WEEKLY
     Route: 058
     Dates: start: 20140110, end: 2014
  2. PEG-INTRON [Suspect]
     Dosage: 80 MICROGRAM, WEEKELY
     Route: 058
     Dates: start: 2014, end: 2014
  3. REBETOL [Suspect]
     Indication: HEPATITIS C
     Dosage: 1000 MG, DAILY
     Route: 048
     Dates: start: 20140110, end: 2014
  4. LOSARTAN POTASSIUM [Concomitant]
     Indication: HYPERTENSION
     Dosage: 100MG DAILY, BID
     Route: 048

REACTIONS (3)
  - Liver transplant [Unknown]
  - Neutropenia [Recovering/Resolving]
  - Pruritus [Recovered/Resolved]
